FAERS Safety Report 19059849 (Version 1)
Quarter: 2021Q1

REPORT INFORMATION
  Report Type: Spontaneous
  Country: IN (occurrence: IN)
  Receive Date: 20210326
  Receipt Date: 20210326
  Transmission Date: 20210420
  Serious: Yes (Other)
  Sender: FDA-Public Use
  Company Number: IN-LUPIN PHARMACEUTICALS INC.-2021-03368

PATIENT
  Age: 41 Year
  Sex: Male

DRUGS (1)
  1. HYDROXYCHLOROQUINE [Suspect]
     Active Substance: HYDROXYCHLOROQUINE
     Indication: COVID-19 PROPHYLAXIS
     Dosage: UNK
     Route: 065

REACTIONS (2)
  - Gastritis [Unknown]
  - Off label use [Unknown]
